FAERS Safety Report 4389183-X (Version None)
Quarter: 2004Q2

REPORT INFORMATION
  Report Type: 
  Country: None (occurrence: None)
  Receive Date: 20040628
  Receipt Date: 20040610
  Transmission Date: 20050107
  Serious: Yes (Hospitalization)
  Sender: FDA-Public Use
  Company Number: S04-FRA-02568-01

PATIENT
  Age: 89 Year
  Sex: Male

DRUGS (6)
  1. SEROPRAM (CITALOPRAM HYDROBROMIDE) [Suspect]
     Dates: end: 20040430
  2. AUGMENTIN [Concomitant]
  3. UMULINE (INSULIN HUMAN ZINCE SUSPENSION) [Concomitant]
  4. OMIX (TAMSULOSIN HYDROCHLORIDE) [Concomitant]
  5. TAREG (VALSARTAN) [Concomitant]
  6. NICARDIPINE HCL [Concomitant]

REACTIONS (15)
  - APHASIA [None]
  - BRAIN OEDEMA [None]
  - CEREBRAL HAEMATOMA [None]
  - CONFUSIONAL STATE [None]
  - DISORIENTATION [None]
  - DISTURBANCE IN ATTENTION [None]
  - DYSSTASIA [None]
  - FALL [None]
  - LUNG INJURY [None]
  - MALAISE [None]
  - MENINGORRHAGIA [None]
  - OEDEMA PERIPHERAL [None]
  - PETECHIAE [None]
  - RENAL INJURY [None]
  - SOMNOLENCE [None]
